FAERS Safety Report 6181444-7 (Version None)
Quarter: 2009Q2

REPORT INFORMATION
  Report Type: 
  Country: None (occurrence: None)
  Receive Date: 20090505
  Receipt Date: 20090505
  Transmission Date: 20091009
  Serious: Yes (Life-Threatening, Other)
  Sender: FDA-Public Use
  Company Number: None

PATIENT
  Age: 52 Year
  Sex: Female
  Weight: 58.9676 kg

DRUGS (1)
  1. SUBOXONE [Suspect]
     Indication: DRUG WITHDRAWAL SYNDROME
     Dosage: 4MG TWICE A DAY SL
     Route: 060
     Dates: start: 20090406, end: 20090503

REACTIONS (8)
  - CHROMATURIA [None]
  - DIZZINESS [None]
  - FEELING COLD [None]
  - HYPOVENTILATION [None]
  - MOOD SWINGS [None]
  - NAUSEA [None]
  - SOMNOLENCE [None]
  - URINE OSMOLARITY INCREASED [None]
